FAERS Safety Report 8824251 (Version 2)
Quarter: 2012Q4

REPORT INFORMATION
  Report Type: 
  Country: ES (occurrence: ES)
  Receive Date: 20121004
  Receipt Date: 20121012
  Transmission Date: 20130627
  Serious: No
  Sender: FDA-Public Use
  Company Number: ES-AMGEN-ESPSP2012062051

PATIENT
  Age: 30 Year
  Sex: Male

DRUGS (2)
  1. ENBREL [Suspect]
     Indication: ANKYLOSING SPONDYLITIS
     Dosage: 50 mg, weekly
     Route: 058
     Dates: start: 20120819, end: 20120913
  2. INDOMETACIN [Concomitant]
     Dosage: 2 capsules of 25 mg, every 8h
     Route: 048
     Dates: start: 20111122

REACTIONS (3)
  - Urticaria [Recovered/Resolved]
  - Headache [Recovered/Resolved]
  - Influenza like illness [Recovered/Resolved]
